FAERS Safety Report 16903046 (Version 5)
Quarter: 2020Q1

REPORT INFORMATION
  Report Type: Report from Study
  Country: US (occurrence: US)
  Receive Date: 20191010
  Receipt Date: 20200129
  Transmission Date: 20200409
  Serious: Yes (Other)
  Sender: FDA-Public Use
  Company Number: US-PFIZER INC-2019407106

PATIENT
  Age: 65 Year
  Sex: Female

DRUGS (1)
  1. IBRANCE [Suspect]
     Active Substance: PALBOCICLIB
     Indication: BREAST CANCER FEMALE
     Dosage: 125 MG CYCLIC (ONCE DAILY FOR 21 DAYS ON AND 7 DAYS OFF)
     Route: 048
     Dates: start: 20190823

REACTIONS (12)
  - Oropharyngeal pain [Unknown]
  - Product dose omission [Unknown]
  - Dry skin [Unknown]
  - Blood potassium decreased [Unknown]
  - Vitamin B12 decreased [Recovered/Resolved]
  - Fatigue [Recovering/Resolving]
  - Bone marrow failure [Unknown]
  - Dehydration [Unknown]
  - Anaemia [Unknown]
  - White blood cell count decreased [Unknown]
  - Peripheral coldness [Unknown]
  - Lymphadenopathy [Unknown]

NARRATIVE: CASE EVENT DATE: 2019
